FAERS Safety Report 4426309-3 (Version None)
Quarter: 2004Q3

REPORT INFORMATION
  Report Type: 
  Country: None (occurrence: None)
  Receive Date: 20040811
  Receipt Date: 20040729
  Transmission Date: 20050211
  Serious: Yes (Hospitalization)
  Sender: FDA-Public Use
  Company Number: 04-07-1096

PATIENT
  Age: 63 Year
  Sex: Female

DRUGS (2)
  1. PACLITAXEL [Suspect]
     Indication: CERVIX CARCINOMA
     Dosage: 280MG; INTRAVENOUS
     Route: 042
  2. CARBOPLATIN [Suspect]
     Indication: CERVIX CARCINOMA
     Dosage: 450MG INTRAVENOUS
     Route: 042

REACTIONS (4)
  - DISEASE PROGRESSION [None]
  - GASTROENTERITIS RADIATION [None]
  - HAEMOGLOBIN DECREASED [None]
  - PLATELET COUNT INCREASED [None]
